FAERS Safety Report 6422202-5 (Version None)
Quarter: 2009Q4

REPORT INFORMATION
  Report Type: 
  Country: None (occurrence: None)
  Receive Date: 20091029
  Receipt Date: 20091029
  Transmission Date: 20100525
  Serious: Yes (Other)
  Sender: FDA-Public Use
  Company Number: None

PATIENT
  Sex: Male
  Weight: 135.9 kg

DRUGS (17)
  1. ZOCOR [Suspect]
     Indication: HYPERCHOLESTEROLAEMIA
     Dosage: 1 TABLET EVERY EVENING BY MOUTH
     Route: 048
     Dates: end: 20090920
  2. ZOCOR [Suspect]
     Indication: HYPERCHOLESTEROLAEMIA
     Dosage: 1 TABLET EVERY EVENING BY MOUTH
     Route: 048
     Dates: start: 20091001, end: 20091007
  3. ALBUTEROL [Concomitant]
  4. NITROGLYCERIN [Concomitant]
  5. ISOSORBIDE DINITRATE [Concomitant]
  6. AMLODIPINE [Concomitant]
  7. LISINOPRIL [Concomitant]
  8. ATENOLOL [Concomitant]
  9. BUPROPION HCL [Concomitant]
  10. HYDROCHLOROTHIAZIDE [Concomitant]
  11. GLIMEPIRIDE [Concomitant]
  12. PLAVIX [Concomitant]
  13. ASPIRIN [Concomitant]
  14. LEVOTHYROXINE SODIUM [Concomitant]
  15. QUETIAPINE [Concomitant]
  16. GABAPENTIN [Concomitant]
  17. FENOFIBRATE [Concomitant]

REACTIONS (2)
  - MIDDLE INSOMNIA [None]
  - MUSCLE SPASMS [None]
